FAERS Safety Report 5810240-2 (Version None)
Quarter: 2008Q3

REPORT INFORMATION
  Report Type: 
  Country: None (occurrence: None)
  Receive Date: 20080715
  Receipt Date: 20071224
  Transmission Date: 20090109
  Serious: No
  Sender: FDA-Public Use
  Company Number: A0701074A

PATIENT
  Sex: Female

DRUGS (2)
  1. IMITREX [Suspect]
     Indication: DRUG USE FOR UNKNOWN INDICATION
     Route: 048
  2. IMITREX [Suspect]
     Route: 058

REACTIONS (1)
  - HEADACHE [None]
